FAERS Safety Report 9470560 (Version 1)
Quarter: 2013Q3

REPORT INFORMATION
  Report Type: Spontaneous
  Country: MX (occurrence: MX)
  Receive Date: 20130822
  Receipt Date: 20130822
  Transmission Date: 20140515
  Serious: Yes (Other)
  Sender: FDA-Public Use
  Company Number: MX-PFIZER INC-2013242541

PATIENT
  Age: 64 Year
  Sex: Female
  Weight: 63 kg

DRUGS (13)
  1. CHAMPIX [Suspect]
     Indication: SMOKING CESSATION THERAPY
     Dosage: UNK
     Route: 048
  2. TAFIL AP [Suspect]
     Indication: ANXIETY
     Dosage: 1 MG, 1X/DAY
     Route: 048
  3. TAFIL [Suspect]
     Indication: ANXIETY
     Dosage: UNK
  4. LEXOTAN [Suspect]
     Dosage: UNK
  5. DILATREND [Concomitant]
     Indication: CARDIAC DISORDER
     Dosage: 25 MG, UNK
     Route: 048
  6. EDARBI [Concomitant]
     Indication: HYPERTENSION
     Dosage: 20 MG, 2X/DAY
     Route: 048
  7. IVABRADINE [Concomitant]
     Indication: HEART RATE INCREASED
     Dosage: 5 MG, 2X/DAY
     Route: 048
  8. CYTOMEL [Concomitant]
     Indication: THYROID DISORDER
     Dosage: 1 DF, 1X/DAY
     Route: 048
  9. LEVOTHYROXINE SODIUM/LIOTHYRONINE [Concomitant]
     Indication: THYROID DISORDER
     Dosage: 1.5 DF, 1X/DAY
     Route: 048
  10. VASCULFLOW [Concomitant]
     Indication: CARDIOVASCULAR DISORDER
     Dosage: 25 MG, 2X/DAY
     Route: 048
  11. VASCULFLOW [Concomitant]
     Indication: LOCAL SWELLING
  12. RIVOTRIL [Concomitant]
     Indication: ANXIETY
     Dosage: 20 DROPS, 1X/DAY
     Route: 048
  13. RIVOTRIL [Concomitant]
     Indication: INSOMNIA

REACTIONS (4)
  - Drug dependence [Unknown]
  - Feeling abnormal [Unknown]
  - Sensory disturbance [Unknown]
  - Drug ineffective [Unknown]
